FAERS Safety Report 6102334-1 (Version None)
Quarter: 2009Q1

REPORT INFORMATION
  Report Type: 
  Country: None (occurrence: None)
  Receive Date: 20090304
  Receipt Date: 20090220
  Transmission Date: 20090719
  Serious: Yes (Hospitalization)
  Sender: FDA-Public Use
  Company Number: KZ-BAYER-200914113GPV

PATIENT
  Age: 15 Year
  Sex: Female

DRUGS (1)
  1. ULTRAVIST-300 (IOPROMIDE), BOTTLES 50 ML [Suspect]
     Indication: UROGRAM
     Dosage: TOTAL DAILY DOSE: 20 ML
     Route: 040
     Dates: start: 20090204, end: 20090204

REACTIONS (4)
  - COMA [None]
  - DYSKINESIA [None]
  - SOMNOLENCE [None]
  - TONIC CONVULSION [None]
